FAERS Safety Report 6254153-3 (Version None)
Quarter: 2009Q3

REPORT INFORMATION
  Report Type: 
  Country: None (occurrence: None)
  Receive Date: 20090702
  Receipt Date: 20090622
  Transmission Date: 20100115
  Serious: Yes (Other)
  Sender: FDA-Public Use
  Company Number: ES-CELGENEUS-144-50794-09050952

PATIENT
  Sex: Female
  Weight: 70 kg

DRUGS (5)
  1. VIDAZA [Suspect]
     Indication: MYELODYSPLASTIC SYNDROME
     Route: 058
     Dates: start: 20060922, end: 20060929
  2. VIDAZA [Suspect]
     Route: 058
     Dates: start: 20081103, end: 20081107
  3. VIDAZA [Suspect]
     Route: 058
     Dates: end: 20090201
  4. SIMVASTATIN [Concomitant]
     Indication: DRUG USE FOR UNKNOWN INDICATION
     Route: 065
  5. OMEPRAZOLE [Concomitant]
     Indication: DRUG USE FOR UNKNOWN INDICATION
     Route: 065

REACTIONS (2)
  - DYSARTHRIA [None]
  - NUCLEAR MAGNETIC RESONANCE IMAGING ABNORMAL [None]
